FAERS Safety Report 12522847 (Version 1)
Quarter: 2016Q3

REPORT INFORMATION
  Report Type: Spontaneous
  Country: US (occurrence: US)
  Receive Date: 20160701
  Receipt Date: 20160701
  Transmission Date: 20161109
  Serious: Yes (Disabling)
  Sender: FDA-Public Use
  Company Number: PHEH2016US016352

PATIENT
  Sex: Female

DRUGS (1)
  1. ZOMETA [Suspect]
     Active Substance: ZOLEDRONIC ACID
     Indication: BREAST CANCER
     Route: 065

REACTIONS (1)
  - Herpes zoster [Not Recovered/Not Resolved]
